FAERS Safety Report 9282928 (Version 1)
Quarter: 2013Q2

REPORT INFORMATION
  Report Type: Spontaneous
  Country: BR (occurrence: BR)
  Receive Date: 20130510
  Receipt Date: 20130510
  Transmission Date: 20140414
  Serious: Yes (Other)
  Sender: FDA-Public Use
  Company Number: BR-BAYER-2013-054457

PATIENT
  Age: 63 Year
  Sex: Female
  Weight: 53.06 kg

DRUGS (2)
  1. ADALAT RETARD [Suspect]
     Indication: HYPERTENSION
     Dosage: 10 MG, BID
     Route: 048
     Dates: start: 201109, end: 201209
  2. ATENOLOL [Concomitant]
     Indication: HYPERTENSION
     Dosage: 1 DF, BID
     Route: 048
     Dates: start: 2008

REACTIONS (2)
  - Blood pressure inadequately controlled [Recovered/Resolved]
  - Drug ineffective [None]
